FAERS Safety Report 24265723 (Version 3)
Quarter: 2024Q4

REPORT INFORMATION
  Report Type: Report from Study
  Country: CA (occurrence: CA)
  Receive Date: 20240830
  Receipt Date: 20241209
  Transmission Date: 20250114
  Serious: Yes (Hospitalization, Other)
  Sender: ABBVIE
  Company Number: CA-ABBVIE-5899561

PATIENT
  Age: 66 Year
  Sex: Male

DRUGS (2)
  1. CARBIDOPA\LEVODOPA [Suspect]
     Active Substance: CARBIDOPA\LEVODOPA
     Indication: Parkinson^s disease
     Dosage: DUODOPA-LEVODOPA20MG/ML, CARBIDOPAMONOHYDRATE5MG/ML
     Route: 050
     Dates: start: 20221116, end: 20241017
  2. CARBIDOPA\LEVODOPA [Suspect]
     Active Substance: CARBIDOPA\LEVODOPA
     Dosage: FIRST ADMIN 2024
     Route: 050

REACTIONS (10)
  - Humerus fracture [Unknown]
  - Weight decreased [Unknown]
  - Device issue [Unknown]
  - Fall [Unknown]
  - Coordination abnormal [Unknown]
  - COVID-19 [Unknown]
  - Muscle atrophy [Unknown]
  - Gait inability [Unknown]
  - Cyanosis [Unknown]
  - Respiratory distress [Unknown]

NARRATIVE: CASE EVENT DATE: 20240101
